FAERS Safety Report 6227817-5 (Version None)
Quarter: 2009Q2

REPORT INFORMATION
  Report Type: 
  Country: None (occurrence: None)
  Receive Date: 20090612
  Receipt Date: 20090604
  Transmission Date: 20091009
  Serious: Yes (Other)
  Sender: FDA-Public Use
  Company Number: A0785207A

PATIENT
  Age: 26 Year
  Sex: Female

DRUGS (6)
  1. COMBIVIR [Suspect]
     Indication: HIV INFECTION
     Dosage: 2TAB PER DAY
     Route: 048
  2. PREDNISONE [Suspect]
     Indication: MIGRAINE
  3. TOPAMAX [Suspect]
     Indication: MIGRAINE
  4. EFFEXOR [Suspect]
     Indication: DEPRESSION
  5. ALLEGRA [Suspect]
     Indication: MULTIPLE ALLERGIES
  6. NEVIRAPINE [Concomitant]
     Indication: HIV INFECTION
     Dosage: 400MG PER DAY
     Route: 048

REACTIONS (3)
  - ABORTION INDUCED [None]
  - DRUG EXPOSURE DURING PREGNANCY [None]
  - ECTOPIC PREGNANCY [None]
